FAERS Safety Report 21243347 (Version 2)
Quarter: 2022Q3

REPORT INFORMATION
  Report Type: Spontaneous
  Country: JP (occurrence: JP)
  Receive Date: 20220823
  Receipt Date: 20220907
  Transmission Date: 20221027
  Serious: Yes (Hospitalization)
  Sender: FDA-Public Use
  Company Number: JP-JNJFOC-20220840781

PATIENT
  Sex: Male

DRUGS (3)
  1. HALOMONTH [Suspect]
     Active Substance: HALOPERIDOL DECANOATE
     Indication: Schizophrenia
     Dosage: HALOMONTH
     Route: 030
     Dates: end: 2022
  2. LODOPIN [Concomitant]
     Route: 048
  3. LORAZEPAM [Concomitant]
     Active Substance: LORAZEPAM
     Route: 048

REACTIONS (4)
  - Altered state of consciousness [Recovering/Resolving]
  - Contusion [Recovering/Resolving]
  - Heat illness [Unknown]
  - Product dose omission issue [Unknown]
